FAERS Safety Report 19282251 (Version 1)
Quarter: 2021Q2

REPORT INFORMATION
  Report Type: Spontaneous
  Country: US (occurrence: US)
  Receive Date: 20210520
  Receipt Date: 20210520
  Transmission Date: 20210717
  Serious: Yes (Other)
  Sender: FDA-Public Use
  Company Number: US-ELI_LILLY_AND_COMPANY-US202105004724

PATIENT
  Sex: Female

DRUGS (4)
  1. ZYPREXA [Suspect]
     Active Substance: OLANZAPINE
     Dosage: 15 MG, DAILY
     Route: 048
     Dates: start: 2007
  2. ZOLOFT [Concomitant]
     Active Substance: SERTRALINE HYDROCHLORIDE
     Indication: PRODUCT USED FOR UNKNOWN INDICATION
  3. ZYPREXA [Suspect]
     Active Substance: OLANZAPINE
     Indication: SCHIZOPHRENIA
     Dosage: 20 MG, DAILY
     Route: 048
     Dates: start: 2007
  4. DEPAKOTE [Concomitant]
     Active Substance: DIVALPROEX SODIUM
     Indication: PRODUCT USED FOR UNKNOWN INDICATION

REACTIONS (4)
  - Prescribed overdose [Unknown]
  - Fall [Unknown]
  - Hip fracture [Unknown]
  - Sedation [Recovered/Resolved]
